FAERS Safety Report 23819586 (Version 1)
Quarter: 2024Q2

REPORT INFORMATION
  Report Type: Spontaneous
  Country: CA (occurrence: None)
  Receive Date: 20240506
  Receipt Date: 20240506
  Transmission Date: 20240716
  Serious: Yes (Hospitalization, Other)
  Sender: FDA-Public Use
  Company Number: CA-PFIZER INC-202400099125

PATIENT
  Age: 71 Year
  Sex: Female

DRUGS (1)
  1. METHOTREXATE [Suspect]
     Active Substance: METHOTREXATE
     Indication: Rheumatoid arthritis
     Dates: end: 202002

REACTIONS (10)
  - Pneumonia [Unknown]
  - Renal disorder [Unknown]
  - Liver disorder [Unknown]
  - Fall [Unknown]
  - Head injury [Unknown]
  - Rash [Unknown]
  - Oral pain [Unknown]
  - Chills [Unknown]
  - Pyrexia [Unknown]
  - Oxygen saturation decreased [Unknown]
